FAERS Safety Report 20239010 (Version 1)
Quarter: 2021Q4

REPORT INFORMATION
  Report Type: Spontaneous
  Country: SE (occurrence: SE)
  Receive Date: 20211228
  Receipt Date: 20211228
  Transmission Date: 20220304
  Serious: Yes (Other)
  Sender: FDA-Public Use
  Company Number: SE-THEA-THEA-2016-SE-00174

PATIENT
  Age: 66 Year
  Sex: Female

DRUGS (6)
  1. AMPICILLIN SODIUM [Suspect]
     Active Substance: AMPICILLIN SODIUM
     Indication: Cataract operation
     Dosage: 0.1 ML, SINGLE
     Route: 031
     Dates: start: 20160209, end: 20160209
  2. AMPICILLIN SODIUM [Suspect]
     Active Substance: AMPICILLIN SODIUM
     Dosage: 0.1 MILLILITER, QD
     Route: 031
     Dates: start: 20160209, end: 20160209
  3. HYALURONATE SODIUM [Suspect]
     Active Substance: HYALURONATE SODIUM
     Indication: Cataract operation
     Dosage: 1 UNK, SINGLE
     Route: 031
     Dates: start: 20160209, end: 20160209
  4. CEFUROXIME SODIUM [Suspect]
     Active Substance: CEFUROXIME SODIUM
     Indication: Cataract operation
     Dosage: 0.1 MILLILITER, QD
     Route: 031
     Dates: start: 20160209, end: 20160209
  5. CEFUROXIME SODIUM [Suspect]
     Active Substance: CEFUROXIME SODIUM
     Dosage: 0.1 MILLILITER, QD
     Route: 031
     Dates: start: 20160209, end: 20160209
  6. HYALURONATE SODIUM [Suspect]
     Active Substance: HYALURONATE SODIUM
     Indication: Cataract operation
     Dosage: 1 UNK, SINGLE
     Route: 031
     Dates: start: 20160209, end: 20160209

REACTIONS (3)
  - Toxic anterior segment syndrome [Unknown]
  - Product storage error [Unknown]
  - Multiple use of single-use product [Unknown]

NARRATIVE: CASE EVENT DATE: 20160209
